FAERS Safety Report 9774794 (Version 1)
Quarter: 2013Q4

REPORT INFORMATION
  Report Type: Spontaneous
  Country: US (occurrence: US)
  Receive Date: 20131220
  Receipt Date: 20131220
  Transmission Date: 20140711
  Serious: No
  Sender: FDA-Public Use
  Company Number: US-GALDERMA-US13000798

PATIENT
  Age: 76 Year
  Sex: Female

DRUGS (1)
  1. METROGEL (METRONIDAZOLE) TOPICAL GEL, 0.75% [Suspect]
     Indication: ACNE
     Route: 061
     Dates: start: 1994

REACTIONS (4)
  - Acne [Unknown]
  - Erythema [Unknown]
  - Pruritus [Unknown]
  - Off label use [Unknown]
